FAERS Safety Report 4790491-9 (Version None)
Quarter: 2005Q4

REPORT INFORMATION
  Report Type: 
  Country: None (occurrence: None)
  Receive Date: 20051005
  Receipt Date: 20050922
  Transmission Date: 20060501
  Serious: Yes (Hospitalization, Other)
  Sender: FDA-Public Use
  Company Number: HQWYE545220SEP05

PATIENT
  Age: 76 Year
  Sex: Female
  Weight: 59.3 kg

DRUGS (3)
  1. MYLOTARG [Suspect]
     Indication: ACUTE MYELOID LEUKAEMIA
     Dosage: 10 MG 1X PER 1 DAY, INTRAVNEOUS
     Route: 042
     Dates: start: 20050909, end: 20050909
  2. CYTARABINE [Concomitant]
  3. MITOXANTRONE [Concomitant]

REACTIONS (3)
  - FEBRILE NEUTROPENIA [None]
  - INFUSION RELATED REACTION [None]
  - PYREXIA [None]
